FAERS Safety Report 9766518 (Version 1)
Quarter: 2013Q4

REPORT INFORMATION
  Report Type: Spontaneous
  Country: US (occurrence: None)
  Receive Date: 20131216
  Receipt Date: 20131216
  Transmission Date: 20140711
  Serious: Yes (Other)
  Sender: FDA-Public Use
  Company Number: None

PATIENT
  Sex: Male
  Weight: 79.83 kg

DRUGS (1)
  1. GLYBURIDE [Suspect]
     Route: 042

REACTIONS (1)
  - Urticaria [None]
